FAERS Safety Report 8773826 (Version 1)
Quarter: 2012Q4

REPORT INFORMATION
  Report Type: 
  Country: US (occurrence: US)
  Receive Date: 20120907
  Receipt Date: 20120907
  Transmission Date: 20130627
  Serious: No
  Sender: FDA-Public Use
  Company Number: US-BAYER-2012-092513

PATIENT

DRUGS (4)
  1. ALEVE CAPLET/TABLET,MIDOL EXTENDED RELIEF CAPLET [Suspect]
     Indication: HEADACHE
     Route: 048
  2. LORTAB [Concomitant]
     Indication: HEADACHE
  3. XANAX [Concomitant]
     Indication: HEADACHE
  4. IBUPROFEN [Concomitant]
     Indication: HEADACHE

REACTIONS (1)
  - Headache [None]
